FAERS Safety Report 20367948 (Version 2)
Quarter: 2022Q1

REPORT INFORMATION
  Report Type: Report from Study
  Country: US (occurrence: US)
  Receive Date: 20220124
  Receipt Date: 20220203
  Transmission Date: 20220423
  Serious: Yes (Other)
  Sender: FDA-Public Use
  Company Number: US-INSMED, INC.-2021-09621-US

PATIENT
  Sex: Male

DRUGS (4)
  1. ARIKAYCE [Suspect]
     Active Substance: AMIKACIN
     Indication: Mycobacterium avium complex infection
     Dosage: 590 MILLIGRAM, QD
     Route: 055
     Dates: start: 202109, end: 20211017
  2. ARIKAYCE [Suspect]
     Active Substance: AMIKACIN
     Dosage: 590 MILLIGRAM, BIW (WEDNESDAYS AND SUNDAYS)
     Route: 055
     Dates: start: 20211017, end: 202111
  3. ARIKAYCE [Suspect]
     Active Substance: AMIKACIN
     Dosage: 590 MILLIGRAM, FOUR TIMES A WEEK
     Route: 055
     Dates: start: 202111, end: 202111
  4. ARIKAYCE [Suspect]
     Active Substance: AMIKACIN
     Dosage: 590 MILLIGRAM, TIW, MONDAY, WEDNESDAY, FRIDAY DOSING SCHEDULE
     Route: 055
     Dates: start: 202201

REACTIONS (12)
  - Bladder cancer recurrent [Unknown]
  - Gout [Unknown]
  - Tooth discolouration [Unknown]
  - Dysgeusia [Not Recovered/Not Resolved]
  - Productive cough [Unknown]
  - Dry mouth [Unknown]
  - Cough [Unknown]
  - Oropharyngeal pain [Unknown]
  - Dysphonia [Unknown]
  - Tinnitus [Unknown]
  - Off label use [Unknown]
  - Therapy interrupted [Unknown]

NARRATIVE: CASE EVENT DATE: 20210101
